FAERS Safety Report 5862353-7 (Version None)
Quarter: 2008Q3

REPORT INFORMATION
  Report Type: 
  Country: None (occurrence: None)
  Receive Date: 20080826
  Receipt Date: 20080815
  Transmission Date: 20090109
  Serious: Yes (Hospitalization)
  Sender: FDA-Public Use
  Company Number: 2008AP002050

PATIENT
  Age: 3 Year
  Sex: Female

DRUGS (2)
  1. CARBAMAZEPINE [Suspect]
     Indication: PARTIAL SEIZURES
     Dosage: 100 MG;BID, 80 MG; BID
  2. CLARITHROMYCIN [Suspect]
     Indication: ACUTE SINUSITIS
     Dosage: 150 MG;BID

REACTIONS (6)
  - ACUTE SINUSITIS [None]
  - ANTICONVULSANT DRUG LEVEL ABOVE THERAPEUTIC [None]
  - ATAXIA [None]
  - DRUG TOXICITY [None]
  - INHIBITORY DRUG INTERACTION [None]
  - VOMITING [None]
